FAERS Safety Report 9432266 (Version 1)
Quarter: 2013Q3

REPORT INFORMATION
  Report Type: Spontaneous
  Country: US (occurrence: US)
  Receive Date: 20130731
  Receipt Date: 20130731
  Transmission Date: 20140515
  Serious: Yes (Hospitalization)
  Sender: FDA-Public Use
  Company Number: PHEH2013US015935

PATIENT
  Sex: Female

DRUGS (4)
  1. GILENYA [Suspect]
     Dosage: 0.5 MG, QD
     Route: 048
     Dates: start: 201303
  2. CALCIUM [Concomitant]
  3. VITAMIN B3 [Concomitant]
  4. VITAMIN D [Concomitant]

REACTIONS (1)
  - Full blood count decreased [Unknown]
